FAERS Safety Report 11787328 (Version 1)
Quarter: 2015Q4

REPORT INFORMATION
  Report Type: Spontaneous
  Country: US (occurrence: US)
  Receive Date: 20151130
  Receipt Date: 20151130
  Transmission Date: 20160305
  Serious: Yes (Hospitalization, Other)
  Sender: FDA-Public Use
  Company Number: US-TEVA-610073USA

PATIENT
  Age: 74 Year
  Sex: Female

DRUGS (1)
  1. AMIODARONE [Suspect]
     Active Substance: AMIODARONE
     Route: 065

REACTIONS (2)
  - Pulmonary toxicity [Recovering/Resolving]
  - Alveolar proteinosis [Recovered/Resolved]
